FAERS Safety Report 25804093 (Version 1)
Quarter: 2025Q3

REPORT INFORMATION
  Report Type: Spontaneous
  Country: SD (occurrence: SD)
  Receive Date: 20250915
  Receipt Date: 20250915
  Transmission Date: 20251021
  Serious: Yes (Life-Threatening, Hospitalization)
  Sender: GALPHARM INTERNATIONAL
  Company Number: SD-MLMSERVICE-20250901-PI630744-00030-1

PATIENT
  Age: 28 Year
  Sex: Male

DRUGS (1)
  1. IBUPROFEN [Suspect]
     Active Substance: IBUPROFEN
     Indication: Arthralgia
     Dosage: 400 MG, QID

REACTIONS (5)
  - Cardiac aneurysm [Recovered/Resolved]
  - Intentional product misuse [Unknown]
  - Abdominal discomfort [Unknown]
  - Symptom masked [Recovered/Resolved]
  - Condition aggravated [Recovered/Resolved]
